FAERS Safety Report 20690044 (Version 2)
Quarter: 2022Q2

REPORT INFORMATION
  Report Type: Spontaneous
  Country: US (occurrence: US)
  Receive Date: 20220408
  Receipt Date: 20220616
  Transmission Date: 20220720
  Serious: Yes (Other)
  Sender: FDA-Public Use
  Company Number: US-BAYER-2022A047415

PATIENT
  Age: 32 Year
  Sex: Female

DRUGS (1)
  1. MIRENA [Suspect]
     Active Substance: LEVONORGESTREL
     Dosage: 20?G/DAY
     Route: 015
     Dates: start: 202101

REACTIONS (4)
  - Device dislocation [None]
  - Bacterial vaginosis [None]
  - Vulvovaginal mycotic infection [None]
  - Urinary tract infection [None]

NARRATIVE: CASE EVENT DATE: 20220311
